FAERS Safety Report 13648472 (Version 1)
Quarter: 2017Q2

REPORT INFORMATION
  Report Type: Report from Study
  Country: IT (occurrence: IT)
  Receive Date: 20170613
  Receipt Date: 20170613
  Transmission Date: 20170830
  Serious: Yes (Death)
  Sender: FDA-Public Use
  Company Number: IT-PFIZER INC-2017255023

PATIENT

DRUGS (8)
  1. MABTHERA [Suspect]
     Active Substance: RITUXIMAB
     Indication: DIFFUSE LARGE B-CELL LYMPHOMA
     Dosage: 375 MG/M2, CYCLIC (GIVEN EVERY 14 DAYS FOR EIGHT CYCLES)
     Route: 042
  2. ACYCLOVIR /00587301/ [Concomitant]
     Active Substance: ACYCLOVIR
     Indication: ANTIVIRAL PROPHYLAXIS
  3. DELTACORTENE [Suspect]
     Active Substance: PREDNISONE
     Indication: DIFFUSE LARGE B-CELL LYMPHOMA
     Dosage: 100 MG/M2, CYCLIC, (ON DAYS 1 TO 5, GIVEN EVERY 14 DAYS FOR EIGHT CYCLES)
     Route: 048
  4. ACYCLOVIR /00587301/ [Concomitant]
     Active Substance: ACYCLOVIR
     Indication: ANTIFUNGAL PROPHYLAXIS
     Dosage: UNK
  5. ADRIBLASTINA [Suspect]
     Active Substance: DOXORUBICIN HYDROCHLORIDE
     Indication: DIFFUSE LARGE B-CELL LYMPHOMA
     Dosage: 50 MG/M2, CYCLIC (ON DAY 1, GIVEN EVERY 14 DAYS FOR EIGHT CYCLES)
     Route: 042
  6. SULFAMETHOXAZOLE AND TRIMETHOPRIM [Concomitant]
     Active Substance: SULFAMETHOXAZOLE\TRIMETHOPRIM
     Indication: PROPHYLAXIS
     Dosage: UNK
  7. VINCRISTINA PFIZER ITALIA [Suspect]
     Active Substance: VINCRISTINE
     Indication: DIFFUSE LARGE B-CELL LYMPHOMA
     Dosage: 1.4 MG/M2, CYCLIC (ON DAY 1, GIVEN EVERY 14 DAYS FOR EIGHT CYCLES)
     Route: 042
  8. ENDOXAN [Suspect]
     Active Substance: CYCLOPHOSPHAMIDE
     Indication: DIFFUSE LARGE B-CELL LYMPHOMA
     Dosage: 750 MG/M2, CYCLIC (ON DAY 1, GIVEN EVERY 14 DAYS FOR EIGHT CYCLES)
     Route: 042

REACTIONS (1)
  - Second primary malignancy [Fatal]
